FAERS Safety Report 5257803-3 (Version None)
Quarter: 2007Q1

REPORT INFORMATION
  Report Type: 
  Country: None (occurrence: None)
  Receive Date: 20061117
  Receipt Date: 20060707
  Transmission Date: 20070707
  Serious: Yes (Other)
  Sender: FDA-Public Use
  Company Number: US-JNJFOC-20060503031

PATIENT
  Age: 58 Year
  Sex: Female
  Weight: 72.5755 kg

DRUGS (8)
  1. LEVAQUIN [Suspect]
     Indication: SINUSITIS
     Dosage: SEE IMAGE
     Route: 048
     Dates: start: 20060413, end: 20060414
  2. LEVAQUIN [Suspect]
     Indication: SINUSITIS
     Dosage: SEE IMAGE
     Route: 048
     Dates: start: 20060416, end: 20060418
  3. HORMONE REPLACEMENT () ANDROGENS AND FEMALE SEX HORMONES IN COMB) [Concomitant]
  4. ATENOLOL [Concomitant]
  5. ADALAT [Concomitant]
  6. MAXIDE (DYAZIDE) [Concomitant]
  7. LIPITOR [Concomitant]
  8. DRIXORAL (DRIXORAL) [Concomitant]

REACTIONS (7)
  - ANOREXIA [None]
  - DEPRESSION [None]
  - DISTURBANCE IN ATTENTION [None]
  - DYSPEPSIA [None]
  - INSOMNIA [None]
  - NAUSEA [None]
  - WEIGHT DECREASED [None]
